FAERS Safety Report 25648288 (Version 1)
Quarter: 2025Q3

REPORT INFORMATION
  Report Type: Spontaneous
  Country: CN (occurrence: CN)
  Receive Date: 20250806
  Receipt Date: 20250806
  Transmission Date: 20251020
  Serious: Yes (Life-Threatening)
  Sender: ROCHE
  Company Number: CN-BoehringerIngelheim-2025-BI-086656

PATIENT
  Age: 63 Year
  Sex: Male
  Weight: 72.0 kg

DRUGS (2)
  1. ALTEPLASE [Suspect]
     Active Substance: ALTEPLASE
     Indication: Cerebrovascular disorder
     Route: 042
     Dates: start: 20250618, end: 20250618
  2. ALTEPLASE [Suspect]
     Active Substance: ALTEPLASE
     Dosage: INTRAVENOUSLY PUMPED
     Route: 042
     Dates: start: 20250618, end: 20250618

REACTIONS (4)
  - Headache [Unknown]
  - Chest discomfort [Unknown]
  - Nausea [Unknown]
  - Vomiting [Unknown]

NARRATIVE: CASE EVENT DATE: 20250618
